FAERS Safety Report 9110429 (Version 1)
Quarter: 2013Q1

REPORT INFORMATION
  Report Type: Spontaneous
  Country: US (occurrence: US)
  Receive Date: 20130219
  Receipt Date: 20130219
  Transmission Date: 20140127
  Serious: No
  Sender: FDA-Public Use
  Company Number: US-BRISTOL-MYERS SQUIBB COMPANY-16928806

PATIENT
  Age: 53 Year
  Sex: Female
  Weight: 56.69 kg

DRUGS (1)
  1. ABATACEPT SUBQ INJECTION 125MG/ML [Suspect]
     Indication: RHEUMATOID ARTHRITIS
     Dosage: 1DF:125MG/ML,LAST INF:22AUG2012,PREVIOUSLY TAKING ORENCIA IV.
     Route: 058

REACTIONS (5)
  - Dysgeusia [Unknown]
  - Oesophageal candidiasis [Unknown]
  - Sinusitis [Recovering/Resolving]
  - Insomnia [Unknown]
  - Trigeminal nerve disorder [Unknown]
